FAERS Safety Report 19181671 (Version 2)
Quarter: 2022Q2

REPORT INFORMATION
  Report Type: Spontaneous
  Country: US (occurrence: US)
  Receive Date: 20210426
  Receipt Date: 20220412
  Transmission Date: 20220721
  Serious: Yes (Hospitalization, Other)
  Sender: FDA-Public Use
  Company Number: US-GLAXOSMITHKLINE-US2021GSK091703

PATIENT
  Sex: Female

DRUGS (1)
  1. RANITIDINE HYDROCHLORIDE [Suspect]
     Active Substance: RANITIDINE HYDROCHLORIDE
     Indication: Product used for unknown indication
     Dosage: UNK
     Route: 065

REACTIONS (9)
  - Invasive ductal breast carcinoma [Unknown]
  - Breast cancer [Unknown]
  - Breast cancer female [Unknown]
  - Neoplasm malignant [Unknown]
  - Intraductal proliferative breast lesion [Unknown]
  - Basal cell carcinoma [Unknown]
  - Skin cancer [Unknown]
  - Breast mass [Unknown]
  - Breast cyst [Unknown]
